FAERS Safety Report 10745884 (Version 1)
Quarter: 2015Q1

REPORT INFORMATION
  Report Type: Spontaneous
  Country: US (occurrence: None)
  Receive Date: 20150127
  Receipt Date: 20150127
  Transmission Date: 20150721
  Serious: No
  Sender: FDA-Public Use
  Company Number: None

PATIENT
  Sex: Male

DRUGS (1)
  1. TECFIDERA [Suspect]
     Active Substance: DIMETHYL FUMARATE
     Indication: MULTIPLE SCLEROSIS
     Dosage: STARTER PACK; SHOULD HAVE BEEN 120MG BID
     Route: 048
     Dates: start: 20141119, end: 20141211

REACTIONS (7)
  - Vomiting [None]
  - Diarrhoea [None]
  - Malaise [None]
  - Flushing [None]
  - Nausea [None]
  - Drug administration error [None]
  - Incorrect dose administered [None]
